FAERS Safety Report 6405142-7 (Version None)
Quarter: 2009Q4

REPORT INFORMATION
  Report Type: 
  Country: None (occurrence: None)
  Receive Date: 20091019
  Receipt Date: 20091009
  Transmission Date: 20100525
  Serious: Yes (Life-Threatening, Hospitalization)
  Sender: FDA-Public Use
  Company Number: JP-ABBOTT-09P-087-0581749-00

PATIENT
  Sex: Female
  Weight: 58.3 kg

DRUGS (5)
  1. HUMIRA [Suspect]
     Indication: RHEUMATOID ARTHRITIS
     Route: 058
     Dates: start: 20090325, end: 20090617
  2. METHOTREXATE [Suspect]
     Indication: RHEUMATOID ARTHRITIS
     Route: 048
     Dates: start: 20090209, end: 20090518
  3. METHOTREXATE [Suspect]
     Route: 048
     Dates: start: 20090518, end: 20090615
  4. CELECOXIB [Concomitant]
     Indication: DRUG USE FOR UNKNOWN INDICATION
     Dosage: 200MG DAILY
     Route: 048
     Dates: end: 20090615
  5. FAMOTIDINE [Concomitant]
     Indication: DRUG USE FOR UNKNOWN INDICATION
     Dosage: 20MG DAILY
     Dates: end: 20090615

REACTIONS (7)
  - CANDIDA TEST POSITIVE [None]
  - CHLAMYDIAL INFECTION [None]
  - INTERSTITIAL LUNG DISEASE [None]
  - MALAISE [None]
  - OXYGEN SATURATION DECREASED [None]
  - PANCYTOPENIA [None]
  - PYREXIA [None]
